FAERS Safety Report 6271348-3 (Version None)
Quarter: 2009Q3

REPORT INFORMATION
  Report Type: 
  Country: None (occurrence: None)
  Receive Date: 20090717
  Receipt Date: 20080222
  Transmission Date: 20100115
  Serious: Yes (Hospitalization, Other)
  Sender: FDA-Public Use
  Company Number: US-ASTRAZENECA-2007UW27802

PATIENT
  Age: 534 Month
  Sex: Male
  Weight: 108.9 kg

DRUGS (31)
  1. SEROQUEL [Suspect]
     Indication: BIPOLAR II DISORDER
     Dosage: 100 MG TO 600 MG
     Route: 048
     Dates: start: 19990101
  2. SEROQUEL [Suspect]
     Indication: DEPRESSION
     Dosage: 100 MG TO 600 MG
     Route: 048
     Dates: start: 19990101
  3. SEROQUEL [Suspect]
     Dosage: 25 MG - 800 MG IN A FLUCTUATING DOSE
     Route: 048
     Dates: start: 20011013
  4. SEROQUEL [Suspect]
     Dosage: 25 MG - 800 MG IN A FLUCTUATING DOSE
     Route: 048
     Dates: start: 20011013
  5. ABILIFY [Concomitant]
  6. GEODON [Concomitant]
  7. HALDOL [Concomitant]
     Dates: start: 19710101
  8. RISPERDAL [Concomitant]
     Dosage: 2 MG - 6 MG
     Route: 048
     Dates: start: 20001014
  9. RISPERDAL [Concomitant]
  10. THORAZINE [Concomitant]
     Dates: start: 19720101, end: 19980101
  11. ZYPREXA [Concomitant]
     Dates: start: 19980101, end: 20000101
  12. ELAVIL [Concomitant]
  13. DEPAKOTE [Concomitant]
     Dosage: 500 MG - 2000 MG
     Route: 048
     Dates: start: 20001013
  14. DEPAKOTE [Concomitant]
  15. XANAX [Concomitant]
     Dosage: 1 MG - 20 MG
     Route: 048
     Dates: start: 20001014
  16. AMBIEN [Concomitant]
  17. ROZEREM [Concomitant]
  18. ZONEGRAN [Concomitant]
     Dates: start: 20030926
  19. COGENTIN [Concomitant]
  20. LITHIUM CARBONATE [Concomitant]
  21. CLOZARIL [Concomitant]
     Route: 048
     Dates: start: 20020612
  22. CLOZARIL [Concomitant]
  23. WELLBUTRIN SR [Concomitant]
     Dosage: 150 MG - 300 MG
     Route: 048
     Dates: start: 20001014
  24. LIPITOR [Concomitant]
     Route: 048
     Dates: start: 20001014
  25. LOPID [Concomitant]
     Dosage: 600 MG - 1200 MG
     Dates: start: 20000310
  26. GLYBURIDE [Concomitant]
     Dates: start: 20050710
  27. CELEXA [Concomitant]
     Dates: start: 20030630
  28. GLUCOVANCE [Concomitant]
     Dosage: 2.5 / 500 TWICE A DAY
     Dates: start: 20040801
  29. VIAGRA [Concomitant]
     Dates: start: 20030926
  30. BENZONATATE [Concomitant]
     Dates: start: 20051022
  31. CYCLOBENZAPRINE [Concomitant]
     Dates: start: 20051111

REACTIONS (13)
  - BIPOLAR DISORDER [None]
  - BIPOLAR I DISORDER [None]
  - BLOOD CHOLESTEROL INCREASED [None]
  - BLOOD TRIGLYCERIDES INCREASED [None]
  - CHEST PAIN [None]
  - DIABETES MELLITUS [None]
  - DIABETES MELLITUS INADEQUATE CONTROL [None]
  - ERECTILE DYSFUNCTION [None]
  - FOOT FRACTURE [None]
  - INSULIN-REQUIRING TYPE 2 DIABETES MELLITUS [None]
  - TIBIA FRACTURE [None]
  - VERTIGO [None]
  - WEIGHT INCREASED [None]
